FAERS Safety Report 10205751 (Version 2)
Quarter: 2014Q3

REPORT INFORMATION
  Report Type: Spontaneous
  Country: US (occurrence: US)
  Receive Date: 20140530
  Receipt Date: 20140730
  Transmission Date: 20150326
  Serious: No
  Sender: FDA-Public Use
  Company Number: US-009507513-1405USA009700

PATIENT
  Sex: Female

DRUGS (1)
  1. NUVARING [Suspect]
     Active Substance: ETHINYL ESTRADIOL\ETONOGESTREL
     Dosage: STRENGH 0.12/0.015 (UNIT NOT PROVIDED)
     Route: 067
     Dates: start: 2004

REACTIONS (4)
  - Incorrect product storage [Unknown]
  - No adverse event [Unknown]
  - Incorrect drug administration duration [Unknown]
  - Drug dose omission [Unknown]
